FAERS Safety Report 8944937 (Version 1)
Quarter: 2012Q4

REPORT INFORMATION
  Report Type: Report from Study
  Country: FR (occurrence: FR)
  Receive Date: 20121204
  Receipt Date: 20121204
  Transmission Date: 20130627
  Serious: Yes (Hospitalization)
  Sender: FDA-Public Use
  Company Number: FR-009507513-1211FRA010627

PATIENT
  Age: 7 Year
  Sex: Male

DRUGS (2)
  1. TEMOZOLOMIDE [Suspect]
     Indication: NEOPLASM
     Dosage: 180 mg, qd
     Route: 048
     Dates: start: 20120717, end: 20121108
  2. HYCAMTIN [Suspect]
     Indication: NEOPLASM
     Dosage: 0.920 mg, qd
     Route: 042
     Dates: start: 20120717, end: 20121108

REACTIONS (2)
  - Device related sepsis [Recovered/Resolved]
  - Febrile neutropenia [Recovered/Resolved]
